FAERS Safety Report 7388583-3 (Version None)
Quarter: 2011Q2

REPORT INFORMATION
  Report Type: 
  Country: None (occurrence: None)
  Receive Date: 20110401
  Receipt Date: 20110323
  Transmission Date: 20111010
  Serious: Yes (Hospitalization)
  Sender: FDA-Public Use
  Company Number: FR-JNJFOC-20101003246

PATIENT
  Sex: Male
  Weight: 73.5 kg

DRUGS (7)
  1. RISPERDAL CONSTA [Suspect]
     Indication: PSYCHOTIC DISORDER
     Route: 030
  2. DIFFU K [Concomitant]
     Indication: PRODUCT USED FOR UNKNOWN INDICATION
     Route: 065
  3. FUROSEMIDE [Concomitant]
     Indication: PRODUCT USED FOR UNKNOWN INDICATION
     Dosage: 40 MG, HALF TABLET PER DAY
     Route: 065
  4. RAMIPRIL [Concomitant]
     Indication: CARDIAC DISORDER
     Route: 065
  5. CARDENSIEL [Concomitant]
     Indication: CARDIAC DISORDER
     Route: 065
  6. BETA  BLOCKER AGENT [Concomitant]
     Indication: CARDIAC DISORDER
     Route: 065
  7. RISPERDAL CONSTA [Suspect]
     Route: 030

REACTIONS (3)
  - CARDIAC DISORDER [None]
  - RESTLESS LEGS SYNDROME [None]
  - AKATHISIA [None]
